FAERS Safety Report 22233863 (Version 4)
Quarter: 2023Q2

REPORT INFORMATION
  Report Type: Report from Study
  Country: CZ (occurrence: CZ)
  Receive Date: 20230420
  Receipt Date: 20230609
  Transmission Date: 20230721
  Serious: Yes (Hospitalization, Disabling)
  Sender: FDA-Public Use
  Company Number: CZ-BIOGEN-2023BI01199968

PATIENT
  Age: 24 Year
  Sex: Female

DRUGS (26)
  1. TYSABRI [Suspect]
     Active Substance: NATALIZUMAB
     Indication: Multiple sclerosis
     Dosage: INFUSED OVER 1 HOUR
     Route: 050
     Dates: start: 20170904, end: 20190612
  2. TYSABRI [Suspect]
     Active Substance: NATALIZUMAB
     Route: 050
     Dates: start: 20221010
  3. TYSABRI [Suspect]
     Active Substance: NATALIZUMAB
     Route: 050
     Dates: start: 20190117
  4. TYSABRI [Suspect]
     Active Substance: NATALIZUMAB
     Route: 050
     Dates: start: 20190215
  5. TYSABRI [Suspect]
     Active Substance: NATALIZUMAB
     Route: 050
     Dates: start: 20190319
  6. TYSABRI [Suspect]
     Active Substance: NATALIZUMAB
     Route: 050
     Dates: start: 20190418
  7. TYSABRI [Suspect]
     Active Substance: NATALIZUMAB
     Route: 050
     Dates: start: 20190520
  8. TYSABRI [Suspect]
     Active Substance: NATALIZUMAB
     Route: 050
     Dates: start: 20170904, end: 20211011
  9. METHYLPREDNISOLONE [Suspect]
     Active Substance: METHYLPREDNISOLONE
     Indication: Multiple sclerosis relapse
     Route: 050
     Dates: start: 20190321, end: 20190426
  10. METHYLPREDNISOLONE [Suspect]
     Active Substance: METHYLPREDNISOLONE
     Route: 050
     Dates: start: 201507
  11. METHYLPREDNISOLONE [Suspect]
     Active Substance: METHYLPREDNISOLONE
     Route: 050
     Dates: start: 201606
  12. METHYLPREDNISOLONE [Suspect]
     Active Substance: METHYLPREDNISOLONE
     Dosage: IN TOTAL 3000 MG
     Route: 050
     Dates: start: 20170510, end: 20170512
  13. METHYLPREDNISOLONE [Suspect]
     Active Substance: METHYLPREDNISOLONE
     Dosage: IN TOTAL 5000MG
     Route: 050
     Dates: start: 20170817, end: 20170823
  14. METHYLPREDNISOLONE [Suspect]
     Active Substance: METHYLPREDNISOLONE
     Dosage: IN TOTAL 2000MG
     Route: 050
     Dates: start: 201904
  15. Esoprex [Concomitant]
     Indication: Depression
     Route: 050
     Dates: start: 20170815
  16. Esoprex [Concomitant]
     Route: 050
     Dates: start: 201507
  17. Esoprex [Concomitant]
     Route: 050
     Dates: start: 20170816
  18. MAGNESIUM CARBONATE\MAGNESIUM OXIDE [Concomitant]
     Active Substance: MAGNESIUM CARBONATE\MAGNESIUM OXIDE
     Indication: Muscle spasms
     Route: 050
     Dates: start: 20170913
  19. MAGNESIUM CARBONATE\MAGNESIUM OXIDE [Concomitant]
     Active Substance: MAGNESIUM CARBONATE\MAGNESIUM OXIDE
     Route: 050
     Dates: start: 201507
  20. MAGNESIUM CARBONATE\MAGNESIUM OXIDE [Concomitant]
     Active Substance: MAGNESIUM CARBONATE\MAGNESIUM OXIDE
     Route: 050
     Dates: start: 20170816
  21. CALTRATE [Concomitant]
     Active Substance: CALCIUM CARBONATE
     Indication: Osteoporosis prophylaxis
     Route: 050
     Dates: start: 20191124
  22. CALTRATE [Concomitant]
     Active Substance: CALCIUM CARBONATE
     Route: 050
     Dates: start: 20190915
  23. AGOMELATINE [Concomitant]
     Active Substance: AGOMELATINE
     Indication: Prophylaxis
     Route: 050
     Dates: start: 20191125
  24. AGOMELATINE [Concomitant]
     Active Substance: AGOMELATINE
     Route: 050
     Dates: start: 20190925
  25. Vigantol [Concomitant]
     Indication: Osteoporosis prophylaxis
     Route: 050
     Dates: start: 201507
  26. Vigantol [Concomitant]
     Route: 050
     Dates: start: 20151216

REACTIONS (1)
  - Osteonecrosis [Recovered/Resolved]

NARRATIVE: CASE EVENT DATE: 20190501
